FAERS Safety Report 4745880-5 (Version None)
Quarter: 2005Q3

REPORT INFORMATION
  Report Type: 
  Country: None (occurrence: None)
  Receive Date: 20050816
  Receipt Date: 20050815
  Transmission Date: 20060218
  Serious: Yes (Death)
  Sender: FDA-Public Use
  Company Number: DE-SANOFI-SYNTHELABO-F01200501538

PATIENT
  Sex: Male

DRUGS (5)
  1. OXALIPLATIN [Suspect]
     Indication: COLON CANCER
     Dosage: Q2W OR Q3W
     Route: 042
  2. CAPECITABINE [Suspect]
     Indication: COLON CANCER
     Route: 048
  3. BEVACIZUMAB [Suspect]
     Indication: COLON CANCER
     Dosage: Q2W OR Q3W
     Route: 042
  4. FRAGMIN [Concomitant]
     Dates: start: 20050518, end: 20050720
  5. PANTOZOL [Concomitant]
     Dates: start: 20050518, end: 20050720

REACTIONS (1)
  - DEATH [None]
